FAERS Safety Report 23849212 (Version 1)
Quarter: 2024Q2

REPORT INFORMATION
  Report Type: Spontaneous
  Country: US (occurrence: None)
  Receive Date: 20240511
  Receipt Date: 20240511
  Transmission Date: 20240716
  Serious: Yes (Hospitalization)
  Sender: FDA-Public Use
  Company Number: None

PATIENT
  Age: 74 Year
  Sex: Male
  Weight: 138 kg

DRUGS (1)
  1. SULFAMETHOXAZOLE\TRIMETHOPRIM [Suspect]
     Active Substance: SULFAMETHOXAZOLE\TRIMETHOPRIM
     Dosage: 1 TAB BID PO?
     Route: 048
     Dates: start: 20201106, end: 20201107

REACTIONS (4)
  - Hyperkalaemia [None]
  - Acute kidney injury [None]
  - Acute kidney injury [None]
  - Tubulointerstitial nephritis [None]

NARRATIVE: CASE EVENT DATE: 20201107
